FAERS Safety Report 19477009 (Version 1)
Quarter: 2021Q2

REPORT INFORMATION
  Report Type: Spontaneous
  Country: AU (occurrence: AU)
  Receive Date: 20210630
  Receipt Date: 20210630
  Transmission Date: 20210717
  Serious: Yes (Death, Other)
  Sender: FDA-Public Use
  Company Number: AU-ACCORD-229248

PATIENT
  Age: 68 Year
  Sex: Male

DRUGS (10)
  1. ACICLOVIR [Suspect]
     Active Substance: ACYCLOVIR
     Indication: CYTOMEGALOVIRUS INFECTION
     Route: 048
     Dates: start: 1996, end: 1996
  2. GANCICLOVIR. [Suspect]
     Active Substance: GANCICLOVIR
     Indication: CYTOMEGALOVIRUS INFECTION
     Route: 042
     Dates: start: 1996, end: 1996
  3. MYCOPHENOLIC ACID. [Suspect]
     Active Substance: MYCOPHENOLIC ACID
     Indication: IMMUNOSUPPRESSANT DRUG THERAPY
     Dosage: MANE
     Dates: start: 1996, end: 2011
  4. PREDNISOLONE. [Suspect]
     Active Substance: PREDNISOLONE
     Indication: IMMUNOSUPPRESSANT DRUG THERAPY
     Dates: start: 1996
  5. VALGANCICLOVIR/VALGANCICLOVIR HYDROCHLORIDE [Suspect]
     Active Substance: VALGANCICLOVIR
     Indication: CYTOMEGALOVIRUS INFECTION
     Dates: start: 2013, end: 2014
  6. AZATHIOPRINE. [Suspect]
     Active Substance: AZATHIOPRINE
     Indication: IMMUNOSUPPRESSANT DRUG THERAPY
     Dates: start: 201311, end: 2014
  7. MYCOPHENOLIC ACID. [Suspect]
     Active Substance: MYCOPHENOLIC ACID
     Indication: IMMUNOSUPPRESSANT DRUG THERAPY
     Dosage: NOCTE
     Dates: start: 1996, end: 2011
  8. MYCOPHENOLIC ACID. [Suspect]
     Active Substance: MYCOPHENOLIC ACID
     Indication: IMMUNOSUPPRESSANT DRUG THERAPY
     Dates: start: 2011, end: 2013
  9. GANCICLOVIR. [Suspect]
     Active Substance: GANCICLOVIR
     Indication: CYTOMEGALOVIRUS INFECTION
     Dates: start: 2012
  10. VALGANCICLOVIR. [Suspect]
     Active Substance: VALGANCICLOVIR
     Indication: CYTOMEGALOVIRUS INFECTION
     Dates: start: 2011, end: 2012

REACTIONS (13)
  - Malnutrition [Fatal]
  - Cytomegalovirus duodenitis [Recovered/Resolved]
  - Cytomegalovirus oesophagitis [Fatal]
  - Fistula of small intestine [Recovered/Resolved]
  - Haematemesis [Fatal]
  - Oesophagopleural fistula [Fatal]
  - Weight decreased [Fatal]
  - Respiratory disorder [Fatal]
  - Gastritis [Recovered/Resolved]
  - Pneumothorax [Fatal]
  - Cytomegalovirus gastrointestinal ulcer [Fatal]
  - Drug resistance [Fatal]
  - Oesophageal ulcer [Fatal]

NARRATIVE: CASE EVENT DATE: 2011
